FAERS Safety Report 8816959 (Version 1)
Quarter: 2012Q4

REPORT INFORMATION
  Report Type: Spontaneous
  Country: US (occurrence: None)
  Receive Date: 20121003
  Receipt Date: 20121003
  Transmission Date: 20130627
  Serious: Yes (Life-Threatening, Hospitalization)
  Sender: FDA-Public Use
  Company Number: None

PATIENT
  Sex: Male
  Weight: 77.11 kg

DRUGS (2)
  1. SEROQUEL [Suspect]
     Indication: DEPRESSION
     Dates: start: 20120501, end: 20120503
  2. SEROQUEL [Suspect]
     Indication: ALCOHOL ABUSE
     Dates: start: 20120501, end: 20120503

REACTIONS (3)
  - Depression [None]
  - Suicide attempt [None]
  - Feeling of despair [None]
